FAERS Safety Report 7937292-8 (Version None)
Quarter: 2011Q4

REPORT INFORMATION
  Report Type: 
  Country: None (occurrence: None)
  Receive Date: 20111123
  Receipt Date: 20111117
  Transmission Date: 20120403
  Serious: Yes (Death, Hospitalization, Other)
  Sender: FDA-Public Use
  Company Number: US-PFIZER INC-2011258404

PATIENT
  Sex: Male

DRUGS (6)
  1. SEPTRA [Suspect]
     Dosage: UNK
  2. SEPTRA [Suspect]
     Dosage: UNK
     Dates: start: 20110930
  3. CIPROFLOXACIN HYDROCHLORIDE [Suspect]
     Dosage: UNK
  4. ROCEPHIN [Suspect]
     Route: 042
  5. AUGMENTIN [Suspect]
     Dosage: UNK
  6. AZITHROMYCIN [Suspect]
     Route: 042

REACTIONS (12)
  - OSTEOMYELITIS [None]
  - PAIN [None]
  - SKIN EXFOLIATION [None]
  - MALAISE [None]
  - DEATH [None]
  - ONYCHOMADESIS [None]
  - LOCALISED INFECTION [None]
  - CONFUSIONAL STATE [None]
  - LOSS OF CONSCIOUSNESS [None]
  - SEPSIS [None]
  - HYPERSENSITIVITY [None]
  - BLISTER [None]
